FAERS Safety Report 9697430 (Version 3)
Quarter: 2014Q2

REPORT INFORMATION
  Report Type: Report from Study
  Country: US (occurrence: US)
  Receive Date: 20131120
  Receipt Date: 20140613
  Transmission Date: 20141212
  Serious: Yes (Hospitalization)
  Sender: FDA-Public Use
  Company Number: US-MPIJNJ-2013MPI000975

PATIENT
  Age: 72 Year
  Sex: Male

DRUGS (1)
  1. VELCADE [Suspect]
     Indication: PLASMA CELL MYELOMA
     Dosage: 2.7 MG, DAYS 1,4,8 AND 11
     Route: 058
     Dates: start: 20130910, end: 20130926

REACTIONS (6)
  - Confusional state [Recovering/Resolving]
  - Dysarthria [Recovered/Resolved]
  - Tremor [Recovered/Resolved]
  - Pancytopenia [Not Recovered/Not Resolved]
  - Asthenia [Not Recovered/Not Resolved]
  - Urinary incontinence [Recovered/Resolved]
